FAERS Safety Report 25380335 (Version 1)
Quarter: 2025Q2

REPORT INFORMATION
  Report Type: Spontaneous
  Country: BR (occurrence: BR)
  Receive Date: 20250530
  Receipt Date: 20250530
  Transmission Date: 20250716
  Serious: Yes (Other)
  Sender: TAIHO ONCOLOGY INC
  Company Number: BR-SERVIER-S25007135

PATIENT
  Age: 57 Year
  Sex: Male
  Weight: 80 kg

DRUGS (1)
  1. LONSURF [Suspect]
     Active Substance: TIPIRACIL HYDROCHLORIDE\TRIFLURIDINE
     Indication: Gastrointestinal cancer metastatic
     Dosage: 60 MG, BID, (6 TABLETS PER DAY, 3 IN THE MORNING AND 3 IN THE EVENING),ON DAYS 1-5 AND 8-12 OF EACH
     Route: 048
     Dates: start: 202410, end: 20250513

REACTIONS (1)
  - Malignant neoplasm progression [Not Recovered/Not Resolved]

NARRATIVE: CASE EVENT DATE: 20250502
